FAERS Safety Report 13967173 (Version 1)
Quarter: 2017Q3

REPORT INFORMATION
  Report Type: Report from Study
  Country: AR (occurrence: AR)
  Receive Date: 20170914
  Receipt Date: 20170914
  Transmission Date: 20171128
  Serious: Yes (Hospitalization)
  Sender: FDA-Public Use
  Company Number: AR-ACTELION-A-CH2017-159206

PATIENT
  Age: 2 Year
  Sex: Male

DRUGS (1)
  1. ZAVESCA [Suspect]
     Active Substance: MIGLUSTAT
     Indication: NIEMANN-PICK DISEASE
     Dosage: UNK
     Route: 048
     Dates: start: 20170728

REACTIONS (2)
  - Respiratory disorder [Unknown]
  - Nosocomial infection [Unknown]

NARRATIVE: CASE EVENT DATE: 20170831
